FAERS Safety Report 4513125-7 (Version None)
Quarter: 2004Q4

REPORT INFORMATION
  Report Type: 
  Country: None (occurrence: None)
  Receive Date: 20041124
  Receipt Date: 20041111
  Transmission Date: 20050328
  Serious: Yes (Hospitalization, Other)
  Sender: FDA-Public Use
  Company Number: USA-2004-0015460

PATIENT
  Age: 46 Year
  Sex: Female
  Weight: 53.1 kg

DRUGS (24)
  1. OXYCONTIN [Suspect]
     Indication: PAIN
     Dosage: 40 MG, BID, ORAL
     Route: 048
  2. PROCARDIA [Concomitant]
  3. PRILOSEC [Concomitant]
  4. BUSPAR [Concomitant]
  5. CELEXA [Concomitant]
  6. NEURONTIN [Concomitant]
  7. TRAZODONE HCL [Concomitant]
  8. CLARITIN [Concomitant]
  9. ULTRAM [Concomitant]
  10. ZIAC [Concomitant]
  11. INDAPAMIDE [Concomitant]
  12. TOPROL-XL [Concomitant]
  13. AMBIEN [Concomitant]
  14. PREVACID [Concomitant]
  15. ALLEGRA [Concomitant]
  16. PHENERGAN [Concomitant]
  17. NASAREL (FLUNISOLIDE) [Concomitant]
  18. XANAX [Concomitant]
  19. BIAXIN [Concomitant]
  20. AMOXIL [Concomitant]
  21. REGLAN [Concomitant]
  22. COUMADIN [Concomitant]
  23. LORTAB [Concomitant]
  24. FLEXERIL [Concomitant]

REACTIONS (62)
  - ABDOMINAL PAIN [None]
  - ABDOMINAL PAIN UPPER [None]
  - AGITATION [None]
  - ALANINE AMINOTRANSFERASE INCREASED [None]
  - ANXIETY [None]
  - ARTHRALGIA [None]
  - ASPARTATE AMINOTRANSFERASE INCREASED [None]
  - ASTHENIA [None]
  - BACK PAIN [None]
  - BILIARY DILATATION [None]
  - BURNING SENSATION [None]
  - CERVICOBRACHIAL SYNDROME [None]
  - CHEST PAIN [None]
  - CONDITION AGGRAVATED [None]
  - CONSTIPATION [None]
  - DECREASED APPETITE [None]
  - DECREASED INTEREST [None]
  - DEPRESSION [None]
  - DIARRHOEA [None]
  - DISTURBANCE IN ATTENTION [None]
  - DRUG DEPENDENCE [None]
  - DRUG EFFECT DECREASED [None]
  - DRUG INEFFECTIVE [None]
  - DRUG WITHDRAWAL SYNDROME [None]
  - FALL [None]
  - FATIGUE [None]
  - FEAR [None]
  - FEELING OF DESPAIR [None]
  - GASTRITIS [None]
  - GASTROOESOPHAGEAL REFLUX DISEASE [None]
  - HEAD INJURY [None]
  - HEADACHE [None]
  - HYPOAESTHESIA [None]
  - INCOHERENT [None]
  - INJURY [None]
  - LETHARGY [None]
  - LIMB INJURY [None]
  - LIVER FUNCTION TEST ABNORMAL [None]
  - MEDICATION ERROR [None]
  - MEMORY IMPAIRMENT [None]
  - MOOD SWINGS [None]
  - MUSCLE SPASMS [None]
  - MYALGIA [None]
  - NAUSEA [None]
  - NECK PAIN [None]
  - NERVOUSNESS [None]
  - ODYNOPHAGIA [None]
  - OEDEMA PERIPHERAL [None]
  - OESOPHAGITIS [None]
  - PAIN [None]
  - PAIN IN EXTREMITY [None]
  - PANIC ATTACK [None]
  - RADICULITIS BRACHIAL [None]
  - RHINORRHOEA [None]
  - SLEEP DISORDER [None]
  - SOCIAL AVOIDANT BEHAVIOUR [None]
  - STRESS SYMPTOMS [None]
  - SUICIDAL IDEATION [None]
  - TREMOR [None]
  - ULCER [None]
  - VOMITING [None]
  - WEIGHT INCREASED [None]
